FAERS Safety Report 4664069-1 (Version None)
Quarter: 2005Q2

REPORT INFORMATION
  Report Type: 
  Country: None (occurrence: None)
  Receive Date: 20050516
  Receipt Date: 20050516
  Transmission Date: 20051028
  Serious: No
  Sender: FDA-Public Use
  Company Number: None

PATIENT
  Sex: Male

DRUGS (1)
  1. PROZAC [Suspect]
     Dates: start: 19950829, end: 19960423

REACTIONS (1)
  - AGGRESSION [None]
